FAERS Safety Report 4319136-9 (Version None)
Quarter: 2004Q1

REPORT INFORMATION
  Report Type: 
  Country: None (occurrence: None)
  Receive Date: 20040318
  Receipt Date: 20020516
  Transmission Date: 20041129
  Serious: Yes (Other)
  Sender: FDA-Public Use
  Company Number: WAES 0205USA02077

PATIENT
  Age: 83 Year
  Sex: Female
  Weight: 61 kg

DRUGS (1)
  1. VIOXX [Suspect]
     Route: 048
     Dates: start: 20010101

REACTIONS (9)
  - CARDIAC DISORDER [None]
  - CARDIAC VALVE DISEASE [None]
  - CAROTID ARTERY DISEASE [None]
  - DEMENTIA [None]
  - DIZZINESS [None]
  - DRUG HYPERSENSITIVITY [None]
  - EYE DISORDER [None]
  - GALLBLADDER DISORDER [None]
  - UNEVALUABLE EVENT [None]
